FAERS Safety Report 24024860 (Version 3)
Quarter: 2024Q3

REPORT INFORMATION
  Report Type: Spontaneous
  Country: FR (occurrence: FR)
  Receive Date: 20240628
  Receipt Date: 20240710
  Transmission Date: 20241017
  Serious: No
  Sender: ROCHE
  Company Number: FR-ROCHE-2788867

PATIENT
  Age: 5 Year
  Weight: 16.5 kg

DRUGS (14)
  1. ALECENSA [Suspect]
     Active Substance: ALECTINIB HYDROCHLORIDE
     Indication: Acute myeloid leukaemia
     Route: 048
  2. ALECENSA [Suspect]
     Active Substance: ALECTINIB HYDROCHLORIDE
     Dosage: IN MORNING AND EVENING FOR ONE MONTH
     Route: 048
  3. ACYCLOVIR [Concomitant]
     Active Substance: ACYCLOVIR
     Dosage: 200MG / 5ML: 200 MG OR 5 ML, MORNING, NOON AND EVENING.
     Route: 048
  4. BACTRIM [Concomitant]
     Active Substance: SULFAMETHOXAZOLE\TRIMETHOPRIM
     Dosage: 200MG / 40MG / 5ML: 400 MG OR 2 MEASURING SPOONS 10ML, 3 TIMES A WEEK: MONDAY
     Route: 048
  5. ORACILLIN [Concomitant]
     Dosage: 0.5MUI / 5ML: 0.4MUI I.E. 4 ML MORNING AND EVENING
  6. INFANRIX HEXA [Concomitant]
     Active Substance: DIPHTHERIA AND TETANUS TOXOIDS AND ACELLULAR PERTUSSIS ADSORBED, INACTIVATED POLIOVIRUS AND HAEMOPHI
     Dosage: 1 INJECTION IN JUNE AND 1 INJECTION IN JULY
  7. PREVENAR [Concomitant]
     Active Substance: PNEUMOCOCCAL 7-VALENT CONJUGATE VACCINE (DIPHTHERIA CRM197 PROTEIN)
  8. EMLA [Concomitant]
     Active Substance: LIDOCAINE\PRILOCAINE
     Dosage: PATCH 2 UNITS
  9. ONDANSETRON [Concomitant]
     Active Substance: ONDANSETRON
     Indication: Nausea
     Dosage: 4MG / 5ML: 4 MG OR 5 ML
     Route: 048
  10. ONDANSETRON [Concomitant]
     Active Substance: ONDANSETRON
     Indication: Vomiting
  11. ACETAMINOPHEN [Concomitant]
     Active Substance: ACETAMINOPHEN
  12. PHLOROGLUCINOL [Concomitant]
     Active Substance: PHLOROGLUCINOL
     Indication: Abdominal pain
     Dosage: 80 MG: 1 LYOC OR 80 MG
  13. PAROEX [Concomitant]
     Active Substance: CHLORHEXIDINE GLUCONATE
  14. DESONIDE [Concomitant]
     Active Substance: DESONIDE
     Dosage: 0.05% CREAM:

REACTIONS (2)
  - Off label use [Unknown]
  - No adverse event [Unknown]
